FAERS Safety Report 9084851 (Version 1)
Quarter: 2013Q1

REPORT INFORMATION
  Report Type: Report from Study
  Country: US (occurrence: US)
  Receive Date: 20130131
  Receipt Date: 20130131
  Transmission Date: 20140127
  Serious: No
  Sender: FDA-Public Use
  Company Number: US-ABBOTT-12P-163-0991987-00

PATIENT
  Age: 19 Year
  Sex: Female

DRUGS (7)
  1. HUMIRA [Suspect]
     Indication: CROHN^S DISEASE
     Dates: start: 20120819
  2. HUMIRA [Suspect]
     Dates: start: 20120826
  3. HUMIRA [Suspect]
     Dosage: AS PRESCRIBED BY PHYSICIAN
  4. AMITRIPTYLINE [Concomitant]
     Indication: ABDOMINAL PAIN
  5. TIGAN [Concomitant]
     Indication: NAUSEA
  6. PROBIOTICS NOS [Concomitant]
     Indication: PRODUCT USED FOR UNKNOWN INDICATION
  7. NEXIUM [Concomitant]
     Indication: PRODUCT USED FOR UNKNOWN INDICATION

REACTIONS (10)
  - Cafe au lait spots [Recovering/Resolving]
  - Empyema drainage [Recovering/Resolving]
  - Cafe au lait spots [Recovering/Resolving]
  - Empyema drainage [Recovering/Resolving]
  - Herpes zoster [Recovering/Resolving]
  - Herpes zoster [Recovering/Resolving]
  - Vomiting [Recovered/Resolved]
  - Haematochezia [Recovered/Resolved]
  - Abdominal pain lower [Recovered/Resolved]
  - Device malfunction [Unknown]
